FAERS Safety Report 14513632 (Version 2)
Quarter: 2019Q1

REPORT INFORMATION
  Report Type: Spontaneous
  Country: US (occurrence: US)
  Receive Date: 20180209
  Receipt Date: 20190115
  Transmission Date: 20190417
  Serious: No
  Sender: FDA-Public Use
  Company Number: US-ALLERGAN-1772204US

PATIENT
  Sex: Female

DRUGS (4)
  1. ZIOPTAN [Concomitant]
     Active Substance: TAFLUPROST
     Indication: GLAUCOMA
     Dosage: 1 GTT, QD
     Route: 047
  2. RESTASIS [Suspect]
     Active Substance: CYCLOSPORINE
     Indication: DRY EYE
     Dosage: UNK , QD
     Route: 047
     Dates: start: 2000
  3. TIMOLOL. [Concomitant]
     Active Substance: TIMOLOL
     Indication: GLAUCOMA
     Dosage: UNK
     Route: 065
     Dates: start: 2000
  4. RESTASIS [Suspect]
     Active Substance: CYCLOSPORINE
     Dosage: UNK, QD
     Route: 047
     Dates: start: 2000

REACTIONS (8)
  - Inappropriate schedule of product administration [Unknown]
  - Skin discolouration [Unknown]
  - Product dropper issue [Unknown]
  - Accidental exposure to product [Unknown]
  - Oropharyngeal pain [Unknown]
  - Product container issue [Unknown]
  - Eye irritation [Unknown]
  - Eye pruritus [Unknown]
